FAERS Safety Report 5410730-0 (Version None)
Quarter: 2007Q3

REPORT INFORMATION
  Report Type: 
  Country: None (occurrence: None)
  Receive Date: 20070810
  Receipt Date: 20070122
  Transmission Date: 20080115
  Serious: Yes (Other)
  Sender: FDA-Public Use
  Company Number: A0636524A

PATIENT
  Age: 72 Year
  Sex: Female

DRUGS (3)
  1. PAXIL CR [Suspect]
     Indication: DEPRESSION
     Dosage: 12.5MG PER DAY
     Route: 048
  2. SYNTHROID [Concomitant]
  3. ASTHMA MEDICATION [Concomitant]

REACTIONS (1)
  - GLAUCOMA [None]
